FAERS Safety Report 12009367 (Version 4)
Quarter: 2016Q1

REPORT INFORMATION
  Report Type: Spontaneous
  Country: US (occurrence: US)
  Receive Date: 20160205
  Receipt Date: 20160304
  Transmission Date: 20160526
  Serious: Yes (Death, Hospitalization, Other)
  Sender: FDA-Public Use
  Company Number: US-PFIZER INC-2016057572

PATIENT
  Age: 44 Year
  Sex: Female
  Weight: 68 kg

DRUGS (1)
  1. IBRANCE [Suspect]
     Active Substance: PALBOCICLIB
     Indication: BREAST CANCER
     Dosage: 125 MG, DAILY ON DAYS 1-21 EVERY 28 DAYS
     Route: 048
     Dates: start: 20160118

REACTIONS (9)
  - Hepatic pain [Unknown]
  - Nausea [Unknown]
  - Ocular icterus [Unknown]
  - Abdominal pain [Unknown]
  - Death [Fatal]
  - Breast cancer [Unknown]
  - Abdominal pain upper [Unknown]
  - Yellow skin [Unknown]
  - Disease progression [Unknown]

NARRATIVE: CASE EVENT DATE: 20160128
